FAERS Safety Report 20664599 (Version 1)
Quarter: 2022Q2

REPORT INFORMATION
  Report Type: Spontaneous
  Country: ES (occurrence: ES)
  Receive Date: 20220401
  Receipt Date: 20220401
  Transmission Date: 20220721
  Serious: Yes (Life-Threatening, Hospitalization, Other)
  Sender: FDA-Public Use
  Company Number: None

PATIENT
  Age: 54 Year
  Sex: Male
  Weight: 67 kg

DRUGS (2)
  1. NEURONTIN [Suspect]
     Active Substance: GABAPENTIN
     Indication: Anxiety
     Dosage: 300 MG, 3X/DAY
     Route: 048
     Dates: start: 20170301
  2. NEURONTIN [Suspect]
     Active Substance: GABAPENTIN
     Dosage: 400 MG, 3X/DAY
     Route: 048
     Dates: end: 20210515

REACTIONS (8)
  - Suicidal ideation [Recovered/Resolved]
  - Depression [Recovered/Resolved]
  - Insomnia [Recovered/Resolved]
  - Decreased appetite [Recovered/Resolved]
  - Agitation [Recovered/Resolved]
  - Disturbance in attention [Recovered/Resolved]
  - Psychomotor hyperactivity [Recovered/Resolved]
  - Off label use [Unknown]

NARRATIVE: CASE EVENT DATE: 20170301
